FAERS Safety Report 4864582-8 (Version None)
Quarter: 2005Q4

REPORT INFORMATION
  Report Type: 
  Country: None (occurrence: None)
  Receive Date: 20051222
  Receipt Date: 20051216
  Transmission Date: 20060501
  Serious: Yes (Other)
  Sender: FDA-Public Use
  Company Number: PHRM2005FR03305

PATIENT
  Age: 42 Year
  Sex: Male

DRUGS (3)
  1. KEPPRA [Concomitant]
     Route: 048
  2. SABRIL [Concomitant]
     Route: 048
  3. TRILEPTAL [Suspect]
     Route: 048

REACTIONS (2)
  - BLOOD CREATININE INCREASED [None]
  - RHABDOMYOLYSIS [None]
